FAERS Safety Report 8947576 (Version 1)
Quarter: 2012Q4

REPORT INFORMATION
  Report Type: 
  Country: DE (occurrence: DE)
  Receive Date: 20121205
  Receipt Date: 20121205
  Transmission Date: 20130627
  Serious: Yes (Hospitalization, Other)
  Sender: FDA-Public Use
  Company Number: DE-ELI_LILLY_AND_COMPANY-DE201211007543

PATIENT
  Age: 0 Year
  Sex: Female

DRUGS (1)
  1. ZYPREXA [Suspect]
     Indication: SCHIZOAFFECTIVE DISORDER
     Dosage: 10 mg, qd
     Route: 064
     Dates: start: 201203, end: 20120518

REACTIONS (3)
  - Hypoglycaemia neonatal [Recovered/Resolved]
  - Hypotonia neonatal [Recovered/Resolved]
  - Foetal exposure during pregnancy [Recovered/Resolved]
